FAERS Safety Report 7603599-7 (Version None)
Quarter: 2011Q3

REPORT INFORMATION
  Report Type: 
  Country: None (occurrence: None)
  Receive Date: 20110712
  Receipt Date: 20110707
  Transmission Date: 20111222
  Serious: No
  Sender: FDA-Public Use
  Company Number: US-PFIZER INC-2011153637

PATIENT
  Sex: Male

DRUGS (4)
  1. ZIAC [Concomitant]
     Dosage: UNK
  2. SUTENT [Suspect]
     Indication: RENAL CANCER
     Dosage: 50 MG, 1X/DAY
     Route: 048
     Dates: start: 20110119
  3. PREVACID [Concomitant]
     Dosage: UNK
  4. TERAZOSIN [Concomitant]
     Dosage: UNK

REACTIONS (2)
  - NAUSEA [None]
  - SKIN LESION [None]
